FAERS Safety Report 9411050 (Version 1)
Quarter: 2013Q3

REPORT INFORMATION
  Report Type: Spontaneous
  Country: US (occurrence: US)
  Receive Date: 20130719
  Receipt Date: 20130719
  Transmission Date: 20140515
  Serious: Yes (Other)
  Sender: FDA-Public Use
  Company Number: US-RB-056282-13

PATIENT
  Age: 30 Year
  Sex: Female

DRUGS (4)
  1. SUBOXONE FILM [Suspect]
     Dosage: SUBOXONE FILM; UNKNOWN DOSAGE DETAILS (CUTTING AT TIMES)
     Route: 060
     Dates: start: 201108, end: 201212
  2. SUBOXONE FILM [Suspect]
     Indication: DRUG DEPENDENCE
     Dosage: SUBOXONE FILM; UNKNOWN DOSAGE WHILE BUYING OFF STREET AND CUTTING
     Route: 060
     Dates: start: 201212
  3. SUBOXONE TABLET [Suspect]
     Indication: DRUG DEPENDENCE
     Dosage: VARIOUS DOSES OFF STREET
     Route: 060
     Dates: start: 200806, end: 200808
  4. SUBOXONE TABLET [Suspect]
     Dosage: UNKNOWN DOSAGE ON MEDICALLY SUPERVISED TREATMENT
     Route: 060
     Dates: start: 200808, end: 201108

REACTIONS (7)
  - Substance abuse [Recovered/Resolved]
  - Underdose [Recovered/Resolved]
  - Wrong technique in drug usage process [Not Recovered/Not Resolved]
  - Hepatitis C [Not Recovered/Not Resolved]
  - Drug dependence [Not Recovered/Not Resolved]
  - Feeling abnormal [Not Recovered/Not Resolved]
  - Insomnia [Not Recovered/Not Resolved]
